FAERS Safety Report 9372536 (Version 3)
Quarter: 2013Q3

REPORT INFORMATION
  Report Type: Spontaneous
  Country: US (occurrence: None)
  Receive Date: 20130606
  Receipt Date: 20130718
  Transmission Date: 20140515
  Serious: Yes (Hospitalization, Other)
  Sender: FDA-Public Use
  Company Number: 2013PROUSA02853

PATIENT
  Age: 60 Year
  Sex: Male
  Weight: 82.5 kg

DRUGS (12)
  1. PROVENGE [Suspect]
     Indication: PROSTATE CANCER METASTATIC
     Route: 042
     Dates: start: 20130415, end: 20130415
  2. FEXOFENDADINE HYDROCHLORIDE (FEXOFENADINE HYDROCHLORIDE) [Concomitant]
  3. CALICUM +D (CALCIUM CARBONATE, COLECALCIFEROL) [Concomitant]
  4. PHENYTOIN SODIUM [Concomitant]
  5. FLUTICASONE PROPIONATE (FLUTICASONE PROPIONATE) [Concomitant]
  6. ALENDRONIC ACID (ALENDRONIC ACID) [Concomitant]
  7. NEURONTIN (GABAPENTIN) [Concomitant]
  8. LUPRON (LEUPRORELIN ACETATE) [Concomitant]
  9. MULTIVITAMIN (VITAMINS NOS) [Concomitant]
  10. PRAVASTATIN (PRAVASTATIN SODIUM) [Concomitant]
  11. ASPIRIN (ACETYLSALICYCLIC ACID) [Concomitant]
  12. DILANTIN (PHENYTOIN) [Concomitant]

REACTIONS (16)
  - Subdural haematoma [None]
  - Dizziness [None]
  - Loss of consciousness [None]
  - Unresponsive to stimuli [None]
  - Disorientation [None]
  - Convulsion [None]
  - Blood pressure decreased [None]
  - Confusional state [None]
  - Hepatic lesion [None]
  - Metastases to liver [None]
  - Osteosclerosis [None]
  - Metastases to bone [None]
  - Aura [None]
  - Syncope [None]
  - Cardiac arrest [None]
  - Malignant neoplasm progression [None]
